FAERS Safety Report 4381154-2 (Version None)
Quarter: 2004Q2

REPORT INFORMATION
  Report Type: 
  Country: None (occurrence: None)
  Receive Date: 20040616
  Receipt Date: 20040603
  Transmission Date: 20050107
  Serious: Yes (Hospitalization, Other)
  Sender: FDA-Public Use
  Company Number: 2020181

PATIENT
  Age: 52 Year
  Sex: Male
  Weight: 73.5 kg

DRUGS (51)
  1. OXYCONTIN [Suspect]
     Indication: PAIN
     Dosage: 20 MG, ORAL
     Route: 048
     Dates: start: 19990105, end: 20020801
  2. OXYCONTIN [Suspect]
     Indication: PAIN
     Dosage: 80 MG, SEE TEXT, ORAL
     Route: 048
     Dates: start: 19990105, end: 20020701
  3. OXYCONTIN [Suspect]
     Indication: PAIN
     Dosage: 40 MG, BID, ORAL
     Route: 048
     Dates: start: 20010901, end: 20020801
  4. OXYCODONE HCL [Suspect]
     Indication: PAIN
     Dosage: 5 MG, Q1H, ORAL; 20 MG, Q1H, ORAL
     Route: 048
     Dates: start: 19990105
  5. OXYCODONE HCL [Suspect]
     Indication: PAIN
     Dosage: 5 MG, Q1H, ORAL; 20 MG, Q1H, ORAL
     Route: 048
     Dates: start: 20000112
  6. AUGMENTIN [Concomitant]
  7. DEMEROL [Concomitant]
  8. PROMETHAZINE [Concomitant]
  9. LOVENOX [Concomitant]
  10. CEFTIN [Concomitant]
  11. CIPRO [Concomitant]
  12. AMBIEN [Concomitant]
  13. PHENERGAN ^NATRAPHARM^ (PROMETHAZINE HYDROCHLORIDE) [Concomitant]
  14. ROCEPHIN [Concomitant]
  15. LEVAQUIN [Concomitant]
  16. ALPRAZOLAM [Concomitant]
  17. KEFLEX [Concomitant]
  18. PROGRAF [Concomitant]
  19. ZOFRAN [Concomitant]
  20. LOPERAMIDE HCL [Concomitant]
  21. FLAGYL ^MAY^ (METRONIDAZOLE) [Concomitant]
  22. ASACOL [Concomitant]
  23. DARVOCET-N 100 [Concomitant]
  24. ATIVAN [Concomitant]
  25. PEPTO-BISMOL (BISMUTH SUBSALICYLATE) [Concomitant]
  26. NEURONTIN [Concomitant]
  27. CLONIDINE [Concomitant]
  28. FAMVIR [Concomitant]
  29. IMITREX ^GLAXO^ (SUMATRIPTAN) [Concomitant]
  30. MOTRIN [Concomitant]
  31. MYLANTA (MAGNESIUM HYDROXIDE, ALUMINIUM HYDROXIDE GEL, DRIED, SIMETICO [Concomitant]
  32. PRILOSEC [Concomitant]
  33. MORPHINE SULFATE [Concomitant]
  34. CLAFORAN [Concomitant]
  35. INAPSINE ^JANSSEN^ (DROPERIDOL) [Concomitant]
  36. TESSALON [Concomitant]
  37. AUGMENTIN [Concomitant]
  38. CELEXA [Concomitant]
  39. REMERON [Concomitant]
  40. BACTRIM [Concomitant]
  41. PROZAC [Concomitant]
  42. LONOX (ATROPINE SULFATE, DIPHENOXYLATE HYDROCHLORIDE) [Concomitant]
  43. VANCOMYCIN [Concomitant]
  44. CARAFATE [Concomitant]
  45. CLEOCIN [Concomitant]
  46. VICODIN [Concomitant]
  47. FLUOCINONIDE [Concomitant]
  48. ERYTHROMYCIN [Concomitant]
  49. LASIX [Concomitant]
  50. DIPHENOX WITH ATROPINE (DOES NOT CODE) [Concomitant]
  51. LOMOTIL [Concomitant]

REACTIONS (46)
  - ANXIETY [None]
  - ARTHRALGIA [None]
  - ASTHMA [None]
  - CELLULITIS [None]
  - CHILLS [None]
  - COLITIS ULCERATIVE [None]
  - COUGH [None]
  - DEHYDRATION [None]
  - DEPRESSION [None]
  - DIARRHOEA [None]
  - DRUG ABUSER [None]
  - DRUG DEPENDENCE [None]
  - DRUG EFFECT DECREASED [None]
  - DRUG WITHDRAWAL SYNDROME [None]
  - ERYTHEMA [None]
  - FEELING JITTERY [None]
  - GASTRITIS [None]
  - GASTROENTERITIS VIRAL [None]
  - HAEMOPTYSIS [None]
  - HEADACHE [None]
  - INFECTIOUS MONONUCLEOSIS [None]
  - JAUNDICE [None]
  - JUGULAR VEIN THROMBOSIS [None]
  - LETHARGY [None]
  - LEUKOCYTOSIS [None]
  - LIVER FUNCTION TEST ABNORMAL [None]
  - LOCALISED SKIN REACTION [None]
  - MUSCLE CRAMP [None]
  - MUSCLE TWITCHING [None]
  - OEDEMA PERIPHERAL [None]
  - PAIN EXACERBATED [None]
  - PAIN IN EXTREMITY [None]
  - PNEUMONIA [None]
  - POLLAKIURIA [None]
  - PRURITUS [None]
  - PSEUDOMONAL SEPSIS [None]
  - PULMONARY CONGESTION [None]
  - PYREXIA [None]
  - RECURRENT CANCER [None]
  - REFUSAL OF TREATMENT BY PATIENT [None]
  - RENAL FAILURE CHRONIC [None]
  - SEPSIS [None]
  - SKIN DESQUAMATION [None]
  - SQUAMOUS CELL CARCINOMA [None]
  - TENDON CALCIFICATION [None]
  - VOMITING [None]
